FAERS Safety Report 6160542-8 (Version None)
Quarter: 2009Q2

REPORT INFORMATION
  Report Type: 
  Country: None (occurrence: None)
  Receive Date: 20090415
  Receipt Date: 20090415
  Transmission Date: 20091009
  Serious: Yes (Other)
  Sender: FDA-Public Use
  Company Number: None

PATIENT
  Age: 32 Year
  Sex: Female
  Weight: 61.2356 kg

DRUGS (1)
  1. TRAMADOL HCL [Suspect]
     Indication: BACK PAIN
     Dosage: 50MG TABLETS 4-5 TIMES DAILY PO A FEW MONTHS
     Route: 048
     Dates: start: 20090202, end: 20090405

REACTIONS (7)
  - DIZZINESS [None]
  - HYPOAESTHESIA [None]
  - MIDDLE INSOMNIA [None]
  - MYALGIA [None]
  - PARAESTHESIA [None]
  - TREMOR [None]
  - WITHDRAWAL SYNDROME [None]
